FAERS Safety Report 7436113-X (Version None)
Quarter: 2011Q2

REPORT INFORMATION
  Report Type: 
  Country: None (occurrence: None)
  Receive Date: 20110425
  Receipt Date: 20110412
  Transmission Date: 20111010
  Serious: Yes (Death, Hospitalization)
  Sender: FDA-Public Use
  Company Number: US-CELGENEUS-163-21880-11022326

PATIENT
  Sex: Male

DRUGS (10)
  1. PREDNISONE [Concomitant]
     Dosage: 10 MILLIGRAM
     Route: 065
  2. FISH OIL [Concomitant]
     Route: 065
  3. METOPROLOL [Concomitant]
     Route: 065
  4. SIMVASTATIN [Concomitant]
     Route: 065
  5. FORADIL [Concomitant]
     Route: 065
  6. REVLIMID [Suspect]
     Dosage: 10 MILLIGRAM
     Route: 048
     Dates: start: 20110115, end: 20110123
  7. ASPIRIN [Concomitant]
     Route: 065
  8. MULTI-VITAMINS [Concomitant]
     Route: 065
  9. LASIX [Concomitant]
     Dosage: 40 MILLIGRAM
     Route: 065
  10. SPIRIVA [Concomitant]
     Dosage: 1 PUFF
     Route: 065

REACTIONS (4)
  - CHRONIC OBSTRUCTIVE PULMONARY DISEASE [None]
  - MULTI-ORGAN FAILURE [None]
  - CARDIAC FAILURE CONGESTIVE [None]
  - DYSPNOEA [None]
